FAERS Safety Report 5867966-4 (Version None)
Quarter: 2008Q3

REPORT INFORMATION
  Report Type: 
  Country: None (occurrence: None)
  Receive Date: 20080902
  Receipt Date: 20080825
  Transmission Date: 20090109
  Serious: Yes (Disabling)
  Sender: FDA-Public Use
  Company Number: CA-BOEHRINGER INGELHEIM GMBH, GERMANY-2008-CN-00417CN

PATIENT

DRUGS (1)
  1. MICARDIS HCT [Suspect]

REACTIONS (1)
  - OSTEOARTHRITIS [None]
